FAERS Safety Report 10219682 (Version 1)
Quarter: 2014Q2

REPORT INFORMATION
  Report Type: Spontaneous
  Country: US (occurrence: US)
  Receive Date: 20140605
  Receipt Date: 20140605
  Transmission Date: 20141212
  Serious: Yes (Hospitalization, Other)
  Sender: FDA-Public Use
  Company Number: US-B.I. PHARMACEUTICALS,INC./RIDGEFIELD-2014-BI-24872BP

PATIENT
  Age: 76 Year
  Sex: Female

DRUGS (9)
  1. SPIRIVA [Suspect]
     Indication: CHRONIC OBSTRUCTIVE PULMONARY DISEASE
     Dosage: 18 MCG
     Route: 055
     Dates: start: 2004
  2. SPIRIVA [Suspect]
     Dosage: 18 MCG
     Route: 048
     Dates: start: 20140531, end: 20140531
  3. METOPROLOL [Concomitant]
     Indication: HYPERTENSION
     Dosage: 25 MG
     Route: 048
  4. SYMBICORT [Concomitant]
     Indication: CHRONIC OBSTRUCTIVE PULMONARY DISEASE
     Dosage: FORMULATION: INHALATION SOLUTION
     Route: 055
  5. PLAVIX [Concomitant]
     Indication: CORONARY ARTERY BYPASS
     Route: 048
  6. LEVOXYL [Concomitant]
     Indication: HYPOTHYROIDISM
     Route: 048
  7. BUMEX [Concomitant]
     Indication: FLUID RETENTION
     Dosage: 10 MG
     Route: 048
  8. FOLIC ACID [Concomitant]
     Indication: ANGIOPATHY
     Route: 048
  9. POTASSIUM [Concomitant]
     Dosage: 10 MEQ
     Route: 048

REACTIONS (6)
  - Small cell lung cancer [Not Recovered/Not Resolved]
  - Gastric ulcer [Recovered/Resolved]
  - Pneumonia [Recovered/Resolved]
  - Lymphoma [Not Recovered/Not Resolved]
  - Traumatic lung injury [Recovered/Resolved]
  - Incorrect route of drug administration [Recovered/Resolved]
